FAERS Safety Report 19488175 (Version 1)
Quarter: 2021Q3

REPORT INFORMATION
  Report Type: Spontaneous
  Country: US (occurrence: US)
  Receive Date: 20210702
  Receipt Date: 20210702
  Transmission Date: 20211014
  Serious: No
  Sender: FDA-Public Use
  Company Number: US-LUPIN PHARMACEUTICALS INC.-2021-10547

PATIENT
  Age: 41 Year
  Sex: Female

DRUGS (12)
  1. METHOTREXATE. [Concomitant]
     Active Substance: METHOTREXATE
     Indication: DERMATITIS PSORIASIFORM
     Dosage: 20 MILLIGRAM/WEEK
     Route: 058
  2. KETOCONAZOLE. [Suspect]
     Active Substance: KETOCONAZOLE
     Indication: ALOPECIA
  3. RISANKIZUMAB [Suspect]
     Active Substance: RISANKIZUMAB
     Indication: DERMATITIS PSORIASIFORM
     Dosage: 150 MILLIGRAM (AT WEEKS 0, 4 AND THEN EVERY 12 WEEKS)
     Route: 058
  4. APREMILAST [Concomitant]
     Active Substance: APREMILAST
     Indication: ALOPECIA
  5. METHOTREXATE. [Concomitant]
     Active Substance: METHOTREXATE
     Indication: ALOPECIA
  6. CLOBETASOL PROPIONATE. [Suspect]
     Active Substance: CLOBETASOL PROPIONATE
     Indication: ALOPECIA
  7. RISANKIZUMAB [Suspect]
     Active Substance: RISANKIZUMAB
     Indication: ALOPECIA
  8. APREMILAST [Concomitant]
     Active Substance: APREMILAST
     Indication: DERMATITIS PSORIASIFORM
     Dosage: 30 MILLIGRAM, BID
     Route: 065
  9. CYCLOSPORINE. [Concomitant]
     Active Substance: CYCLOSPORINE
     Indication: ALOPECIA
     Dosage: UNK UNK, QD (DOSE: BELOW 100 MG DAILY)
     Route: 065
  10. CLOBETASOL PROPIONATE. [Suspect]
     Active Substance: CLOBETASOL PROPIONATE
     Indication: DERMATITIS PSORIASIFORM
     Dosage: UNK (SCALP SOLUTION)
     Route: 065
  11. CYCLOSPORINE. [Concomitant]
     Active Substance: CYCLOSPORINE
     Indication: DERMATITIS PSORIASIFORM
     Dosage: 300 MILLIGRAM, QD
     Route: 065
  12. KETOCONAZOLE. [Suspect]
     Active Substance: KETOCONAZOLE
     Indication: DERMATITIS PSORIASIFORM
     Dosage: UNK
     Route: 065

REACTIONS (1)
  - Treatment failure [Unknown]
